FAERS Safety Report 9135085 (Version 1)
Quarter: 2013Q1

REPORT INFORMATION
  Report Type: Spontaneous
  Country: CH (occurrence: CH)
  Receive Date: 20130304
  Receipt Date: 20130304
  Transmission Date: 20140127
  Serious: Yes (Hospitalization)
  Sender: FDA-Public Use
  Company Number: CH-009507513-1303CHE000559

PATIENT
  Age: 87 Year
  Sex: Female

DRUGS (11)
  1. FOSAMAX [Suspect]
     Indication: OSTEOPOROSIS
     Dosage: 70 MG, QW
     Route: 048
  2. PREDNISONE [Suspect]
     Indication: SYSTEMIC LUPUS ERYTHEMATOSUS
     Dosage: 5 MG, QD
     Route: 048
  3. XARELTO [Suspect]
     Indication: ATRIAL FIBRILLATION
     Dosage: 20 MG, QD
     Route: 048
     Dates: end: 20130131
  4. FLUOXETINE [Suspect]
     Dosage: 20 MG, QD
     Route: 048
  5. ALDACTONE TABLETS [Suspect]
     Indication: MYOCARDIAL ISCHAEMIA
     Dosage: 12.5 MG, BID
     Route: 048
  6. TORSEMIDE [Suspect]
     Dosage: 5 MG, QD
     Route: 048
  7. RENITEN [Concomitant]
     Indication: HYPERTENSION
     Dosage: 10 MG, BID
     Route: 048
  8. TENORMIN [Concomitant]
     Indication: MYOCARDIAL ISCHAEMIA
     Dosage: 25 MG, QD
     Route: 048
  9. ANTRA (OMEPRAZOLE) [Concomitant]
     Dosage: 20 MG, QD
     Route: 048
     Dates: end: 20130131
  10. CORVATON [Concomitant]
     Indication: MYOCARDIAL ISCHAEMIA
     Dosage: 8 MG, BID
     Route: 048
  11. GYNO-TARDYFERON [Concomitant]
     Dosage: 1 DF, QD
     Route: 048
     Dates: end: 20130131

REACTIONS (2)
  - Melaena [Unknown]
  - Upper gastrointestinal haemorrhage [Unknown]
